FAERS Safety Report 9436236 (Version 1)
Quarter: 2013Q3

REPORT INFORMATION
  Report Type: Spontaneous
  Country: US (occurrence: US)
  Receive Date: 20130801
  Receipt Date: 20130801
  Transmission Date: 20140515
  Serious: Yes (Death, Life-Threatening, Hospitalization)
  Sender: FDA-Public Use
  Company Number: US-JNJFOC-20130716758

PATIENT
  Age: 41 Year
  Sex: Female

DRUGS (2)
  1. BENADRYL [Suspect]
     Indication: PRODUCT USED FOR UNKNOWN INDICATION
     Route: 065
  2. XANAX [Suspect]
     Indication: PRODUCT USED FOR UNKNOWN INDICATION
     Route: 065

REACTIONS (5)
  - Completed suicide [Fatal]
  - Mechanical ventilation [Recovering/Resolving]
  - Unresponsive to stimuli [Recovered/Resolved]
  - Overdose [Unknown]
  - Convulsion [Unknown]
